FAERS Safety Report 13920449 (Version 1)
Quarter: 2017Q3

REPORT INFORMATION
  Report Type: Spontaneous
  Country: US (occurrence: US)
  Receive Date: 20170830
  Receipt Date: 20170830
  Transmission Date: 20171127
  Serious: Yes (Other)
  Sender: FDA-Public Use
  Company Number: PHEH2017US027443

PATIENT
  Age: 83 Year
  Sex: Female
  Weight: 46.71 kg

DRUGS (4)
  1. PREDNISOLONE ACETATE. [Suspect]
     Active Substance: PREDNISOLONE ACETATE
     Indication: POSTOPERATIVE CARE
     Dosage: 1 GTT, TID FOR FIRST WEEK
     Route: 047
     Dates: start: 20161222
  2. PREDNISOLONE ACETATE. [Suspect]
     Active Substance: PREDNISOLONE ACETATE
     Dosage: 1 GTT, QD AFTER SECOND WEEK UNTIL THE BOTTLE WAS EMPTY
     Route: 047
  3. KETOROLAC TROMETAMINE [Concomitant]
     Active Substance: KETOROLAC TROMETHAMINE
     Indication: POSTOPERATIVE CARE
     Dosage: UNK
     Route: 047
     Dates: start: 20161222
  4. PREDNISOLONE ACETATE. [Suspect]
     Active Substance: PREDNISOLONE ACETATE
     Dosage: 1 GTT, BID FOR SECOND WEEK
     Route: 047

REACTIONS (9)
  - Eye discharge [Recovered/Resolved]
  - Weight decreased [Unknown]
  - Medication residue present [Unknown]
  - Angle closure glaucoma [Unknown]
  - Eye pain [Recovered/Resolved]
  - Sleep disorder [Unknown]
  - Vision blurred [Recovered/Resolved]
  - Eating disorder [Unknown]
  - Visual acuity reduced [Recovered/Resolved]

NARRATIVE: CASE EVENT DATE: 201701
